FAERS Safety Report 9965354 (Version 1)
Quarter: 2014Q1

REPORT INFORMATION
  Report Type: Report from Study
  Country: US (occurrence: US)
  Receive Date: 20140305
  Receipt Date: 20140305
  Transmission Date: 20141002
  Serious: No
  Sender: FDA-Public Use
  Company Number: US-ABBVIE-13P-163-1126425-00

PATIENT
  Age: 49 Year
  Sex: Male

DRUGS (6)
  1. HUMIRA [Suspect]
     Indication: PSORIASIS
     Dates: start: 20130220
  2. HUMIRA [Suspect]
     Dates: start: 20130515
  3. ALPRAZOLAM [Concomitant]
     Indication: NERVOUSNESS
  4. TOPROL [Concomitant]
     Indication: HYPERTENSION
     Dosage: 100 MG DAILY
  5. TRAMADOL [Concomitant]
     Indication: PAIN
     Dosage: AS NEEDED
  6. TRAMADOL [Concomitant]
     Indication: INGUINAL HERNIA

REACTIONS (2)
  - Pneumonia [Recovering/Resolving]
  - Rash [Recovering/Resolving]
